FAERS Safety Report 5188538-3 (Version None)
Quarter: 2006Q4

REPORT INFORMATION
  Report Type: 
  Country: None (occurrence: None)
  Receive Date: 20061214
  Receipt Date: 20061207
  Transmission Date: 20070319
  Serious: Yes (Hospitalization)
  Sender: FDA-Public Use
  Company Number: 228399

PATIENT
  Age: 84 Year
  Sex: Female

DRUGS (9)
  1. RANIBIZUMAB (CODE BROKEN) [Suspect]
     Indication: MACULAR DEGENERATION
     Dosage: 0.5 MG/5ML, INTRAVITREAL
     Dates: start: 20041216
  2. RELAFEN [Concomitant]
  3. BUFFERIN [Concomitant]
  4. ZIAC [Concomitant]
  5. ACCUPRIL [Concomitant]
  6. CALAN [Concomitant]
  7. LIPITOR [Concomitant]
  8. CALCIUM TABLETS NOS (CALCIUM NOS) [Concomitant]
  9. METAMUCIL (PSYLLIUM HUSK) [Concomitant]

REACTIONS (1)
  - CEREBROVASCULAR ACCIDENT [None]
